FAERS Safety Report 6300090-5 (Version None)
Quarter: 2009Q3

REPORT INFORMATION
  Report Type: 
  Country: None (occurrence: None)
  Receive Date: 20090806
  Receipt Date: 20090803
  Transmission Date: 20100115
  Serious: Yes (Hospitalization)
  Sender: FDA-Public Use
  Company Number: AR-AMGEN-US358874

PATIENT
  Sex: Female
  Weight: 50 kg

DRUGS (3)
  1. ENBREL [Suspect]
     Indication: RHEUMATOID ARTHRITIS
     Route: 058
     Dates: start: 20070108
  2. DICLOFENAC [Concomitant]
     Indication: PAIN
     Route: 048
  3. DICLOFENAC [Concomitant]
     Indication: INFLAMMATION

REACTIONS (2)
  - HEPATIC PAIN [None]
  - VOMITING [None]
